FAERS Safety Report 17058665 (Version 1)
Quarter: 2019Q4

REPORT INFORMATION
  Report Type: Spontaneous
  Country: US (occurrence: US)
  Receive Date: 20191121
  Receipt Date: 20191121
  Transmission Date: 20200122
  Serious: Yes (Disabling)
  Sender: FDA-Public Use
  Company Number: US-APPCO PHARMA LLC-2077086

PATIENT
  Sex: Female

DRUGS (1)
  1. HYDROXYCHLOROQUINE SULFATE. [Suspect]
     Active Substance: HYDROXYCHLOROQUINE SULFATE
     Indication: MIXED CONNECTIVE TISSUE DISEASE
     Route: 065

REACTIONS (11)
  - Condition aggravated [Unknown]
  - Pyrexia [Unknown]
  - Flank pain [Unknown]
  - Musculoskeletal pain [Unknown]
  - Impaired work ability [Unknown]
  - Fatigue [Unknown]
  - Loss of personal independence in daily activities [Unknown]
  - Drug ineffective [Unknown]
  - Urine output decreased [Unknown]
  - Product substitution issue [Unknown]
  - Headache [Unknown]
